FAERS Safety Report 4801675-5 (Version None)
Quarter: 2005Q4

REPORT INFORMATION
  Report Type: 
  Country: None (occurrence: None)
  Receive Date: 20051018
  Receipt Date: 20050804
  Transmission Date: 20060501
  Serious: Yes (Life-Threatening, Hospitalization)
  Sender: FDA-Public Use
  Company Number: GBPFL-S-20050011

PATIENT
  Age: 34 Year
  Sex: Female

DRUGS (5)
  1. NAVELBINE [Suspect]
     Dosage: 25MGM2 CYCLIC
     Route: 042
     Dates: start: 20050624, end: 20050722
  2. HERCEPTIN [Concomitant]
     Indication: DRUG USE FOR UNKNOWN INDICATION
     Route: 065
     Dates: start: 20050618
  3. CYCLOPHOSPHAMIDE [Concomitant]
     Dates: start: 20050304, end: 20050527
  4. METHOTREXATE [Concomitant]
     Dates: start: 20050304, end: 20050527
  5. FLUOROURACIL [Concomitant]
     Dates: start: 20050304, end: 20050527

REACTIONS (4)
  - BRONCHOSPASM [None]
  - DYSPNOEA [None]
  - RESPIRATORY DISTRESS [None]
  - WHEEZING [None]
